FAERS Safety Report 9129180 (Version 1)
Quarter: 2013Q1

REPORT INFORMATION
  Report Type: Spontaneous
  Country: US (occurrence: US)
  Receive Date: 20130228
  Receipt Date: 20130228
  Transmission Date: 20140127
  Serious: No
  Sender: FDA-Public Use
  Company Number: US-ABBOTT-12P-163-1022166-00

PATIENT
  Sex: Male
  Weight: 131.66 kg

DRUGS (3)
  1. ANDROGEL [Suspect]
     Indication: BLOOD TESTOSTERONE DECREASED
     Dosage: PUMP
     Route: 061
     Dates: start: 201208
  2. AMOXICILLIN [Suspect]
     Indication: EAR INFECTION
     Route: 048
     Dates: start: 2012, end: 2012
  3. LASIX [Concomitant]
     Indication: PRODUCT USED FOR UNKNOWN INDICATION
     Route: 048

REACTIONS (5)
  - Pain in extremity [Recovering/Resolving]
  - Pain [Recovering/Resolving]
  - Arthritis [Recovering/Resolving]
  - Ear infection [Recovered/Resolved]
  - Wrong technique in drug usage process [Not Recovered/Not Resolved]
